FAERS Safety Report 25783701 (Version 1)
Quarter: 2025Q3

REPORT INFORMATION
  Report Type: Spontaneous
  Country: US (occurrence: US)
  Receive Date: 20250910
  Receipt Date: 20250910
  Transmission Date: 20251021
  Serious: No
  Sender: APOTEX
  Company Number: US-APOTEX-2025AP012109

PATIENT
  Age: 73 Year
  Sex: Female

DRUGS (11)
  1. IMIQUIMOD [Suspect]
     Active Substance: IMIQUIMOD
     Indication: Langerhans^ cell histiocytosis
     Dosage: UNK, QD
     Route: 061
  2. CLOBETASOL [Suspect]
     Active Substance: CLOBETASOL
     Indication: Langerhans^ cell histiocytosis
     Dosage: UNK, BID (ALTERNATING EVERY 2 WEEKS WITH IMIQUIMOD AND NYSTATIN)
     Route: 061
  3. NYSTATIN [Suspect]
     Active Substance: NYSTATIN
     Indication: Langerhans^ cell histiocytosis
     Dosage: UNK, QD
     Route: 061
  4. NYSTATIN [Suspect]
     Active Substance: NYSTATIN
     Indication: Radiation skin injury
  5. NYSTATIN [Suspect]
     Active Substance: NYSTATIN
     Indication: Superinfection
  6. MUPIROCIN [Suspect]
     Active Substance: MUPIROCIN
     Indication: Radiation skin injury
     Route: 061
  7. MUPIROCIN [Suspect]
     Active Substance: MUPIROCIN
     Indication: Superinfection
  8. TRIAMCINOLONE [Suspect]
     Active Substance: TRIAMCINOLONE
     Indication: Radiation skin injury
     Route: 061
  9. TRIAMCINOLONE [Suspect]
     Active Substance: TRIAMCINOLONE
     Indication: Superinfection
  10. FLUCONAZOLE [Concomitant]
     Active Substance: FLUCONAZOLE
     Indication: Radiation skin injury
     Route: 048
  11. FLUCONAZOLE [Concomitant]
     Active Substance: FLUCONAZOLE
     Indication: Superinfection

REACTIONS (3)
  - Drug intolerance [Unknown]
  - Vulvovaginal burning sensation [Unknown]
  - Therapy partial responder [Unknown]
